FAERS Safety Report 6069807-1 (Version None)
Quarter: 2009Q1

REPORT INFORMATION
  Report Type: 
  Country: None (occurrence: None)
  Receive Date: 20090204
  Receipt Date: 20090204
  Transmission Date: 20090719
  Serious: Yes (Other)
  Sender: FDA-Public Use
  Company Number: None

PATIENT
  Age: 28 Year
  Sex: Female
  Weight: 68.0396 kg

DRUGS (1)
  1. METRONIDAZOLE [Suspect]
     Indication: VAGINITIS BACTERIAL
     Dosage: 1 2 TIMES A DAY PO
     Route: 048
     Dates: start: 20090130, end: 20090202

REACTIONS (3)
  - BURNING SENSATION [None]
  - DRUG EXPOSURE DURING PREGNANCY [None]
  - RASH GENERALISED [None]
